FAERS Safety Report 15347629 (Version 1)
Quarter: 2018Q3

REPORT INFORMATION
  Report Type: Spontaneous
  Country: US (occurrence: US)
  Receive Date: 20180904
  Receipt Date: 20180904
  Transmission Date: 20181010
  Serious: Yes (Other)
  Sender: FDA-Public Use
  Company Number: US-LANNETT COMPANY, INC.-US-2018LAN001009

PATIENT
  Age: 7 Year
  Sex: Male

DRUGS (3)
  1. NEOMYCIN SULFATE. [Suspect]
     Active Substance: NEOMYCIN SULFATE
     Indication: SKIN LESION
     Dosage: UNK, 3?DAY TRIAL
     Route: 065
  2. BACITRACIN. [Suspect]
     Active Substance: BACITRACIN
     Indication: SKIN LESION
     Dosage: UNK, 3?DAY TRIAL
     Route: 065
  3. POLYMYXIN B. [Suspect]
     Active Substance: POLYMYXIN B
     Indication: SKIN LESION
     Dosage: UNK, 3?DAY TRIAL
     Route: 065

REACTIONS (1)
  - Rash [Recovered/Resolved]
